FAERS Safety Report 7224228-0 (Version None)
Quarter: 2011Q1

REPORT INFORMATION
  Report Type: 
  Country: None (occurrence: None)
  Receive Date: 20110106
  Receipt Date: 20110106
  Transmission Date: 20110831
  Serious: Yes (Disabling)
  Sender: FDA-Public Use
  Company Number: None

PATIENT
  Sex: Female
  Weight: 45.5 kg

DRUGS (2)
  1. CHLORTHALIDONE [Suspect]
     Indication: HYPERTENSION
     Dosage: 1 Q.D. 047
     Route: 048
     Dates: start: 20101007
  2. CHLORTHALIDONE [Suspect]
     Indication: HYPERTENSION
     Dosage: 1 Q.D. 047
     Route: 048
     Dates: start: 20101008

REACTIONS (2)
  - BALANCE DISORDER [None]
  - GAIT DISTURBANCE [None]
